FAERS Safety Report 12889239 (Version 1)
Quarter: 2016Q4

REPORT INFORMATION
  Report Type: Not Available
  Country: JP (occurrence: JP)
  Receive Date: 20161027
  Receipt Date: 20161027
  Transmission Date: 20170207
  Serious: Yes (Life-Threatening, Hospitalization)
  Sender: FDA-Public Use
  Company Number: JP-ANIPHARMA-2016-JP-000010

PATIENT
  Age: 27 Year
  Sex: Male

DRUGS (7)
  1. PEROSPIRONE [Suspect]
     Active Substance: PEROSPIRONE
     Dosage: 50 TABLETS OF 4 MG EACH
     Route: 048
  2. DULOXETINE. [Suspect]
     Active Substance: DULOXETINE
     Dosage: 5 TABLETS OF 20 MG EACH
     Route: 048
  3. RISPERIDONE. [Suspect]
     Active Substance: RISPERIDONE
     Dosage: 13 PACKETS OF 1 MG EACH
     Route: 048
  4. LEVOMEPROMAZINE [Suspect]
     Active Substance: LEVOMEPROMAZINE
     Dosage: 14 TABLETS OF 25 MG EACH
     Route: 048
  5. FLUVOXAMINE MALEATE 50 MG [Suspect]
     Active Substance: FLUVOXAMINE MALEATE
     Dosage: 45 TABLETS
     Route: 048
  6. FLUNITRAZEPAM [Suspect]
     Active Substance: FLUNITRAZEPAM
     Dosage: 13 TABLETS OF 1 MG EACH
     Route: 048
  7. SODIUM VALPROATE [Suspect]
     Active Substance: VALPROATE SODIUM
     Dosage: 18 TABLETS OF 200 MG EACH
     Route: 048

REACTIONS (4)
  - Overdose [Recovered/Resolved]
  - Neuroleptic malignant syndrome [Recovered/Resolved]
  - Coma blister [Unknown]
  - Rhabdomyolysis [Recovered/Resolved]
